FAERS Safety Report 18114313 (Version 1)
Quarter: 2020Q3

REPORT INFORMATION
  Report Type: Spontaneous
  Country: US (occurrence: US)
  Receive Date: 20200805
  Receipt Date: 20200805
  Transmission Date: 20201103
  Serious: Yes (Disabling)
  Sender: FDA-Public Use
  Company Number: None

PATIENT
  Age: 19 Year
  Sex: Female
  Weight: 113.4 kg

DRUGS (1)
  1. NEXPLANON [Suspect]
     Active Substance: ETONOGESTREL
     Indication: CONTRACEPTION
     Dates: start: 20140525, end: 20140701

REACTIONS (8)
  - Pain in extremity [None]
  - Weight increased [None]
  - Depression [None]
  - Skin burning sensation [None]
  - Emotional distress [None]
  - Complication of device removal [None]
  - Device breakage [None]
  - Scar [None]

NARRATIVE: CASE EVENT DATE: 20140701
